FAERS Safety Report 23750983 (Version 2)
Quarter: 2024Q2

REPORT INFORMATION
  Report Type: Spontaneous
  Country: US (occurrence: US)
  Receive Date: 20240417
  Receipt Date: 20240514
  Transmission Date: 20240716
  Serious: No
  Sender: FDA-Public Use
  Company Number: US-Merck Healthcare KGaA-2024020175

PATIENT
  Age: 57 Year
  Sex: Female

DRUGS (1)
  1. MAVENCLAD [Suspect]
     Active Substance: CLADRIBINE
     Indication: Multiple sclerosis
     Route: 048

REACTIONS (4)
  - Balance disorder [Unknown]
  - Visual impairment [Unknown]
  - Fatigue [Unknown]
  - Fall [Unknown]
